FAERS Safety Report 5775391-X (Version None)
Quarter: 2008Q2

REPORT INFORMATION
  Report Type: 
  Country: None (occurrence: None)
  Receive Date: 20080612
  Receipt Date: 20080528
  Transmission Date: 20081010
  Serious: Yes (Hospitalization)
  Sender: FDA-Public Use
  Company Number: 2008BI010039

PATIENT
  Age: 66 Year
  Sex: Female
  Weight: 57 kg

DRUGS (2)
  1. AVONEX [Suspect]
     Indication: MULTIPLE SCLEROSIS
     Dosage: 30 UG;QW;IM
     Route: 030
  2. BACLOFEN [Concomitant]

REACTIONS (4)
  - BLOOD CHLORIDE DECREASED [None]
  - BREAST CANCER FEMALE [None]
  - CONDITION AGGRAVATED [None]
  - MULTIPLE SCLEROSIS [None]
